FAERS Safety Report 5486541-7 (Version None)
Quarter: 2007Q3

REPORT INFORMATION
  Report Type: 
  Country: None (occurrence: None)
  Receive Date: 20070919
  Receipt Date: 20070511
  Transmission Date: 20080115
  Serious: No
  Sender: FDA-Public Use
  Company Number: 2007RL000215

PATIENT
  Sex: Female

DRUGS (2)
  1. OMACOR [Suspect]
     Indication: DRUG USE FOR UNKNOWN INDICATION
     Dosage: 2 GM; QD; PO
     Route: 048
     Dates: start: 20070101, end: 20070101
  2. ^VARIOUS MEDICINES AND CREAMS^ [Concomitant]

REACTIONS (3)
  - ECZEMA [None]
  - GRANULOMA ANNULARE [None]
  - TREATMENT NONCOMPLIANCE [None]
